FAERS Safety Report 9237465 (Version 2)
Quarter: 2013Q2

REPORT INFORMATION
  Report Type: Spontaneous
  Country: US (occurrence: US)
  Receive Date: 20130417
  Receipt Date: 20130509
  Transmission Date: 20140414
  Serious: Yes (Other)
  Sender: FDA-Public Use
  Company Number: US-PFIZER INC-2013116982

PATIENT
  Age: 55 Year
  Sex: Female
  Weight: 72.56 kg

DRUGS (3)
  1. PREMARIN [Suspect]
     Indication: HYSTERECTOMY
     Dosage: UNK, 2X/WEEK
     Route: 067
     Dates: start: 19910115
  2. SERTRALINE [Concomitant]
     Indication: DEPRESSION
     Dosage: 100 MG, 2X/DAY
  3. SERTRALINE [Concomitant]
     Indication: ANXIETY

REACTIONS (2)
  - Cystitis [Unknown]
  - Fungal infection [Unknown]
